FAERS Safety Report 4653736-1 (Version None)
Quarter: 2005Q2

REPORT INFORMATION
  Report Type: 
  Country: None (occurrence: None)
  Receive Date: 20050504
  Receipt Date: 20050422
  Transmission Date: 20051028
  Serious: Yes (Death)
  Sender: FDA-Public Use
  Company Number: HQWYE265525APR05

PATIENT
  Age: 16 Year
  Sex: Female
  Weight: 99.88 kg

DRUGS (2)
  1. NORPLANT SYSTEM [Suspect]
     Indication: CONTRACEPTION
     Dosage: 6 CAPSULES, SUBCUTANEOUS
     Route: 058
     Dates: start: 19930101, end: 19990101
  2. SYNTHROID [Concomitant]

REACTIONS (5)
  - CORONARY ARTERY DISEASE [None]
  - HEADACHE [None]
  - IMPLANT SITE REACTION [None]
  - MYOCARDIAL INFARCTION [None]
  - WEIGHT INCREASED [None]
